FAERS Safety Report 8606013-8 (Version None)
Quarter: 2012Q3

REPORT INFORMATION
  Report Type: 
  Country: None (occurrence: None)
  Receive Date: 20120820
  Receipt Date: 20120810
  Transmission Date: 20120928
  Serious: Yes (Hospitalization)
  Sender: FDA-Public Use
  Company Number: JP-ROCHE-1098778

PATIENT
  Sex: Male

DRUGS (6)
  1. DECADRON PHOSPHATE [Concomitant]
     Dosage: DOSAGE IS UNCERTAIN.
     Route: 065
  2. OXALIPLATIN [Concomitant]
     Indication: COLON CANCER
     Route: 041
     Dates: start: 20111219, end: 20120709
  3. XELODA [Suspect]
     Indication: COLON CANCER
     Dosage: 2 WEEKS ADMINISTRATION AND 1 WEEK REST
     Route: 048
     Dates: start: 20111219, end: 20120723
  4. MAGNESIUM OXIDE [Concomitant]
     Dosage: DOSAGE IS UNCERTAIN.
     Route: 048
  5. HERBAL NERVE TONIC LIQUID [Concomitant]
     Dosage: DOSAGE IS UNCERTAIN.
     Route: 048
  6. EMEND [Concomitant]
     Dosage: DOSAGE IS UNCERTAIN.
     Route: 048

REACTIONS (1)
  - SCHIZOPHRENIA [None]
